FAERS Safety Report 10237664 (Version 2)
Quarter: 2014Q2

REPORT INFORMATION
  Report Type: Spontaneous
  Country: US (occurrence: US)
  Receive Date: 20140616
  Receipt Date: 20140623
  Transmission Date: 20141212
  Serious: Yes (Hospitalization, Disabling, Other)
  Sender: FDA-Public Use
  Company Number: US-UCBSA-2014000532

PATIENT
  Age: 47 Year
  Sex: Male
  Weight: 96.36 kg

DRUGS (7)
  1. KEPPRA XR [Suspect]
     Indication: CONVULSION
     Dosage: 500 MG, 2X/DAY (BID)
     Route: 048
     Dates: start: 2011, end: 201405
  2. KEPPRA [Suspect]
     Indication: CONVULSION
     Dosage: 500 MG, 2X/DAY (BID)
     Route: 048
     Dates: start: 2009, end: 2011
  3. ALBUTEROL [Concomitant]
     Indication: ASTHMA
     Dosage: UNK, AS NEEDED (PRN)
  4. ASPIRIN [Concomitant]
     Dosage: UNK; ONE TABLET ONCE DAILY
  5. LIPITOR [Concomitant]
     Dosage: UNK DOSE
  6. LISINOPRIL [Concomitant]
     Dosage: 2.5 MG, ONCE DAILY (QD)
  7. ADVAIR [Concomitant]
     Dosage: 2 PUFFS ONCE DAILY

REACTIONS (6)
  - Pneumonia influenzal [Recovered/Resolved]
  - Myocardial infarction [Recovered/Resolved]
  - Generalised tonic-clonic seizure [Recovered/Resolved]
  - Coma [Recovered/Resolved]
  - Chronic obstructive pulmonary disease [Not Recovered/Not Resolved]
  - Inappropriate schedule of drug administration [Unknown]
